FAERS Safety Report 4622341-5 (Version None)
Quarter: 2005Q1

REPORT INFORMATION
  Report Type: 
  Country: None (occurrence: None)
  Receive Date: 20050324
  Receipt Date: 20050324
  Transmission Date: 20050727
  Serious: No
  Sender: FDA-Public Use
  Company Number: None

PATIENT

DRUGS (1)
  1. MACUGEN [Suspect]
     Indication: MACULAR DEGENERATION
     Route: 047
     Dates: start: 20050322, end: 20050322

REACTIONS (5)
  - DISCOMFORT [None]
  - EYE OPERATION COMPLICATION [None]
  - INJECTION SITE PAIN [None]
  - INJECTION SITE REACTION [None]
  - PHARMACEUTICAL PRODUCT COMPLAINT [None]
